FAERS Safety Report 9536389 (Version 1)
Quarter: 2013Q2

REPORT INFORMATION
  Report Type: Spontaneous
  Country: US (occurrence: None)
  Receive Date: 20130507
  Receipt Date: 20130507
  Transmission Date: 20140414
  Serious: No
  Sender: FDA-Public Use
  Company Number: PHEH2013US000586

PATIENT
  Age: 10 Year
  Sex: Male

DRUGS (3)
  1. AFINITOR [Suspect]
     Indication: BRAIN NEOPLASM BENIGN
     Dates: start: 20111015
  2. AFINITOR [Suspect]
     Indication: TUBEROUS SCLEROSIS
     Dates: start: 20111015
  3. KEPPRA (LEVETIRACETAM) [Concomitant]

REACTIONS (1)
  - Insomnia [None]
